FAERS Safety Report 19310974 (Version 2)
Quarter: 2021Q2

REPORT INFORMATION
  Report Type: Report from Study
  Country: None (occurrence: US)
  Receive Date: 20210526
  Receipt Date: 20210630
  Transmission Date: 20210717
  Serious: Yes (Hospitalization)
  Sender: FDA-Public Use
  Company Number: US-ABBVIE-21K-163-3921140-00

PATIENT
  Sex: Male
  Weight: 112.14 kg

DRUGS (2)
  1. VENETOCLAX. [Concomitant]
     Active Substance: VENETOCLAX
     Indication: PRODUCT USED FOR UNKNOWN INDICATION
  2. IMBRUVICA [Suspect]
     Active Substance: IBRUTINIB
     Indication: CHRONIC LYMPHOCYTIC LEUKAEMIA
     Route: 048
     Dates: end: 20180614

REACTIONS (1)
  - Cardiac arrest [Recovered/Resolved]

NARRATIVE: CASE EVENT DATE: 20180614
